FAERS Safety Report 6410828-4 (Version None)
Quarter: 2009Q4

REPORT INFORMATION
  Report Type: 
  Country: None (occurrence: None)
  Receive Date: 20091020
  Receipt Date: 20091020
  Transmission Date: 20100525
  Serious: Yes (Other)
  Sender: FDA-Public Use
  Company Number: None

PATIENT
  Age: 76 Year
  Sex: Male
  Weight: 77.3 kg

DRUGS (1)
  1. BACLOFEN [Suspect]
     Indication: MUSCLE SPASMS
     Dosage: 10MG BID ORAL
     Route: 048
     Dates: start: 20090918, end: 20090924

REACTIONS (4)
  - DRUG DISPENSING ERROR [None]
  - MOVEMENT DISORDER [None]
  - MUSCULOSKELETAL DISORDER [None]
  - PRODUCT SUBSTITUTION ISSUE [None]
